FAERS Safety Report 7388242-7 (Version None)
Quarter: 2011Q1

REPORT INFORMATION
  Report Type: 
  Country: None (occurrence: None)
  Receive Date: 20110324
  Receipt Date: 20110311
  Transmission Date: 20110831
  Serious: Yes (Hospitalization)
  Sender: FDA-Public Use
  Company Number: TCI2011A01969

PATIENT
  Age: 79 Year
  Sex: Female

DRUGS (1)
  1. ACTOS [Suspect]
     Indication: DIABETES MELLITUS
     Dosage: 15 MG (15 MG,1 IN 1 D) PER ORAL
     Route: 048

REACTIONS (5)
  - OEDEMA PERIPHERAL [None]
  - PNEUMONIA [None]
  - RIGHT VENTRICULAR FAILURE [None]
  - PLEURAL EFFUSION [None]
  - CARDIOTHORACIC RATIO INCREASED [None]
